FAERS Safety Report 11641275 (Version 1)
Quarter: 2015Q4

REPORT INFORMATION
  Report Type: Spontaneous
  Country: GB (occurrence: GB)
  Receive Date: 20151019
  Receipt Date: 20151019
  Transmission Date: 20160304
  Serious: Yes (Death, Hospitalization, Disabling)
  Sender: FDA-Public Use
  Company Number: GB-FRESENIUS KABI-FK201505052

PATIENT
  Age: 62 Year
  Sex: Female

DRUGS (7)
  1. VINCRISTINE [Concomitant]
     Active Substance: VINCRISTINE
     Dates: start: 200112, end: 200202
  2. CYCLOPHOSPHAMIDE. [Concomitant]
     Active Substance: CYCLOPHOSPHAMIDE
     Dates: start: 200112, end: 200202
  3. PREDNISONE. [Concomitant]
     Active Substance: PREDNISONE
     Dates: start: 200112, end: 200202
  4. FLUDARABINE [Suspect]
     Active Substance: FLUDARABINE PHOSPHATE
     Indication: B-CELL LYMPHOMA
     Route: 048
     Dates: start: 20031119, end: 20031123
  5. MABTHERA [Suspect]
     Active Substance: RITUXIMAB
     Indication: B-CELL LYMPHOMA
     Route: 042
     Dates: start: 20020606, end: 20020627
  6. DOXORUBICIN [Concomitant]
     Active Substance: DOXORUBICIN
     Dates: start: 200112, end: 200202
  7. ALLOPURINOL. [Suspect]
     Active Substance: ALLOPURINOL
     Indication: B-CELL LYMPHOMA
     Route: 048
     Dates: start: 20031119

REACTIONS (2)
  - Lower respiratory tract infection [Not Recovered/Not Resolved]
  - Non-Hodgkin^s lymphoma [Fatal]

NARRATIVE: CASE EVENT DATE: 20031208
